FAERS Safety Report 6569541-5 (Version None)
Quarter: 2010Q1

REPORT INFORMATION
  Report Type: 
  Country: None (occurrence: None)
  Receive Date: 20100204
  Receipt Date: 20100201
  Transmission Date: 20100710
  Serious: Yes (Life-Threatening)
  Sender: FDA-Public Use
  Company Number: NZ-ASTRAZENECA-2010SE04498

PATIENT
  Age: 73 Year
  Sex: Female

DRUGS (5)
  1. QUETIAPINE [Suspect]
     Indication: MAJOR DEPRESSION
     Route: 048
     Dates: start: 20060725, end: 20060911
  2. CITALOPRAM [Concomitant]
     Indication: MAJOR DEPRESSION
     Route: 048
     Dates: start: 20060717, end: 20060911
  3. CARBIMAZOLE [Concomitant]
     Indication: HYPOTHYROIDISM
     Route: 048
  4. WARFARIN SODIUM [Concomitant]
     Indication: ATRIAL FIBRILLATION
     Route: 048
  5. SIMVASTATIN [Concomitant]
     Indication: HYPERLIPIDAEMIA
     Route: 048

REACTIONS (3)
  - CARDIAC ARREST [None]
  - ELECTROCARDIOGRAM QT PROLONGED [None]
  - TORSADE DE POINTES [None]
